FAERS Safety Report 9484993 (Version 2)
Quarter: 2013Q3

REPORT INFORMATION
  Report Type: Spontaneous
  Country: US (occurrence: US)
  Receive Date: 20130828
  Receipt Date: 20130828
  Transmission Date: 20140515
  Serious: No
  Sender: FDA-Public Use
  Company Number: US-ABBOTT-13P-163-1120630-00

PATIENT
  Age: 41 Year
  Sex: Female
  Weight: 63.56 kg

DRUGS (3)
  1. ANDROGEL [Suspect]
     Indication: PRODUCT USED FOR UNKNOWN INDICATION
     Dosage: FOUR PUMPS
  2. ANDROGEL [Suspect]
     Indication: PRODUCT USED FOR UNKNOWN INDICATION
  3. ZYRTEC [Concomitant]
     Indication: SEASONAL ALLERGY

REACTIONS (8)
  - Blood testosterone increased [Not Recovered/Not Resolved]
  - Acne [Not Recovered/Not Resolved]
  - Hair growth abnormal [Not Recovered/Not Resolved]
  - Weight increased [Not Recovered/Not Resolved]
  - Mood swings [Not Recovered/Not Resolved]
  - Crying [Not Recovered/Not Resolved]
  - Infertility [Not Recovered/Not Resolved]
  - Accidental exposure to product [Not Recovered/Not Resolved]
